FAERS Safety Report 8826196 (Version 1)
Quarter: 2012Q4

REPORT INFORMATION
  Report Type: 
  Country: FR (occurrence: FR)
  Receive Date: 20121005
  Receipt Date: 20121005
  Transmission Date: 20130627
  Serious: Yes (Hospitalization)
  Sender: FDA-Public Use
  Company Number: FR-NOVOPROD-360954

PATIENT
  Age: 77 Year
  Sex: Male

DRUGS (12)
  1. VICTOZA [Suspect]
     Indication: TYPE 2 DIABETES MELLITUS
     Route: 065
     Dates: start: 20120531, end: 20120629
  2. KREDEX [Suspect]
     Indication: MYOCARDIAL ISCHAEMIA
     Dosage: 25 mg twice daily
     Route: 048
     Dates: start: 20120510, end: 20120629
  3. KREDEX [Suspect]
     Dosage: 25 mg daily
     Route: 048
     Dates: start: 20120629
  4. KREDEX [Suspect]
     Dosage: 12.5 mg twice daily
     Route: 048
     Dates: end: 20120510
  5. PREVISCAN                           /00261401/ [Concomitant]
  6. ZANIDIP [Concomitant]
  7. DIFFU K [Concomitant]
  8. ODRIK [Concomitant]
  9. EUPRESSYL                          /00631801/ [Concomitant]
  10. VASTEN                             /00880402/ [Concomitant]
  11. LASILIX                            /00032601/ [Concomitant]
  12. ALDACTONE                          /00006201/ [Concomitant]

REACTIONS (2)
  - Ascites [Recovered/Resolved]
  - Oedema peripheral [Recovered/Resolved]
